FAERS Safety Report 9044676 (Version 2)
Quarter: 2013Q1

REPORT INFORMATION
  Report Type: Spontaneous
  Country: HR (occurrence: HR)
  Receive Date: 20130130
  Receipt Date: 20130226
  Transmission Date: 20140127
  Serious: Yes (Life-Threatening, Hospitalization, Other)
  Sender: FDA-Public Use
  Company Number: HR-ELI_LILLY_AND_COMPANY-HR201301007320

PATIENT
  Age: 57 None
  Sex: Male
  Weight: 95 kg

DRUGS (1)
  1. ZYPADHERA [Suspect]
     Indication: PSYCHOTIC DISORDER
     Dosage: 405 MG, MONTHLY (1/M)
     Route: 030
     Dates: start: 20120315

REACTIONS (9)
  - C-reactive protein increased [Recovered/Resolved]
  - Somnolence [Recovered/Resolved]
  - Sinus tachycardia [Recovered/Resolved]
  - Psychomotor retardation [Recovered/Resolved]
  - Delirium [Recovered/Resolved]
  - Disorientation [Recovered/Resolved]
  - Confusional state [Recovered/Resolved]
  - Ataxia [Recovered/Resolved]
  - Cognitive disorder [Recovered/Resolved]
